FAERS Safety Report 6331911-8 (Version None)
Quarter: 2009Q3

REPORT INFORMATION
  Report Type: 
  Country: None (occurrence: None)
  Receive Date: 20090826
  Receipt Date: 20090811
  Transmission Date: 20100115
  Serious: Yes (Death)
  Sender: FDA-Public Use
  Company Number: LIT-09-0017-W

PATIENT

DRUGS (1)
  1. FAMOTIDINE [Suspect]

REACTIONS (3)
  - DUODENAL ULCER [None]
  - EROSIVE OESOPHAGITIS [None]
  - GASTRIC ULCER [None]
